FAERS Safety Report 7700276-9 (Version None)
Quarter: 2011Q3

REPORT INFORMATION
  Report Type: 
  Country: None (occurrence: None)
  Receive Date: 20110822
  Receipt Date: 20110812
  Transmission Date: 20111222
  Serious: Yes (Hospitalization)
  Sender: FDA-Public Use
  Company Number: US-US-EMD SERONO, INC.-7001047

PATIENT
  Sex: Female
  Weight: 96 kg

DRUGS (5)
  1. REBIF [Suspect]
     Route: 058
     Dates: start: 20100901, end: 20101212
  2. OXYCONTIN [Concomitant]
     Indication: BACK PAIN
  3. UNSPECIFIED MEDICATIONS [TOO MANY TO LIST] [Concomitant]
  4. LIDOCAINE [Concomitant]
     Indication: BACK PAIN
  5. REBIF [Suspect]
     Indication: MULTIPLE SCLEROSIS
     Route: 058
     Dates: start: 20081111, end: 20100501

REACTIONS (11)
  - PNEUMONIA [None]
  - BACK PAIN [None]
  - OVARIAN CANCER [None]
  - INTESTINAL OBSTRUCTION [None]
  - SINUS CONGESTION [None]
  - GASTROINTESTINAL INFECTION [None]
  - SCAR [None]
  - GASTROENTERITIS VIRAL [None]
  - FALL [None]
  - ENDOMETRIAL HYPERTROPHY [None]
  - INFLUENZA LIKE ILLNESS [None]
